FAERS Safety Report 9748457 (Version 1)
Quarter: 2013Q4

REPORT INFORMATION
  Report Type: Spontaneous
  Country: US (occurrence: US)
  Receive Date: 20131212
  Receipt Date: 20131212
  Transmission Date: 20140711
  Serious: Yes (Other)
  Sender: FDA-Public Use
  Company Number: US-BEH-2013039418

PATIENT
  Age: 50 Year
  Sex: Female

DRUGS (1)
  1. HIZENTRA [Suspect]

REACTIONS (2)
  - Escherichia infection [Not Recovered/Not Resolved]
  - Giardiasis [Not Recovered/Not Resolved]
